FAERS Safety Report 7321896-X (Version None)
Quarter: 2011Q1

REPORT INFORMATION
  Report Type: 
  Country: None (occurrence: None)
  Receive Date: 20110228
  Receipt Date: 20110216
  Transmission Date: 20110831
  Serious: Yes (Hospitalization, Other)
  Sender: FDA-Public Use
  Company Number: US-ROCHE-649885

PATIENT
  Sex: Male
  Weight: 74.8 kg

DRUGS (6)
  1. CODEINE SULFATE [Concomitant]
     Indication: PAIN
  2. IBUPROFEN [Concomitant]
     Route: 048
  3. PIROXICAM [Concomitant]
     Route: 048
  4. ACCUTANE [Suspect]
     Route: 048
     Dates: start: 20060206, end: 20060801
  5. LORATADINE [Concomitant]
     Route: 048
  6. ACETAMINOPHEN [Concomitant]
     Dosage: DOSE AS NEEDED

REACTIONS (13)
  - CELLULITIS [None]
  - HAEMORRHOIDS [None]
  - FURUNCLE [None]
  - MENTAL DISORDER [None]
  - CROHN'S DISEASE [None]
  - DEPRESSION [None]
  - JOINT SPRAIN [None]
  - OROPHARYNGEAL PAIN [None]
  - COLITIS ULCERATIVE [None]
  - ADJUSTMENT DISORDER WITH DEPRESSED MOOD [None]
  - INFLAMMATORY BOWEL DISEASE [None]
  - BLOOD CHOLESTEROL INCREASED [None]
  - STRESS [None]
